FAERS Safety Report 8206494-8 (Version None)
Quarter: 2012Q1

REPORT INFORMATION
  Report Type: 
  Country: None (occurrence: None)
  Receive Date: 20120313
  Receipt Date: 20120308
  Transmission Date: 20120608
  Serious: Yes (Life-Threatening, Hospitalization)
  Sender: FDA-Public Use
  Company Number: US-ASTRAZENECA-2012SE16376

PATIENT
  Age: 21 Year
  Sex: Female
  Weight: 54.4 kg

DRUGS (9)
  1. LITHIUM CARBONATE [Concomitant]
     Dosage: 300 MG IN MORNING AND 600 MG AT NIGHT
  2. SEROQUEL [Suspect]
     Route: 048
  3. PROZAC [Concomitant]
  4. CLOZAPINE [Concomitant]
     Indication: ANXIETY DISORDER
  5. SEROQUEL [Suspect]
     Indication: BIPOLAR I DISORDER
     Dosage: 50 MG IN THE MORNING AND 400 MG AT NIGHT
     Route: 048
     Dates: start: 20110101
  6. SLEEPING PILL [Suspect]
     Route: 065
  7. AMBIEN [Concomitant]
     Indication: SLEEP DISORDER
  8. SEROQUEL [Suspect]
     Dosage: PATIENT TOOK 3000MG OF SEROQUEL XR
     Route: 048
  9. WELLBUTRIN [Concomitant]
     Indication: ANTIDEPRESSANT THERAPY

REACTIONS (6)
  - INSOMNIA [None]
  - STUPOR [None]
  - HYPOPNOEA [None]
  - HALLUCINATION [None]
  - SUICIDE ATTEMPT [None]
  - ABNORMAL BEHAVIOUR [None]
